FAERS Safety Report 5894409-7 (Version None)
Quarter: 2008Q3

REPORT INFORMATION
  Report Type: 
  Country: None (occurrence: None)
  Receive Date: 20080922
  Receipt Date: 20080915
  Transmission Date: 20090109
  Serious: Yes (Hospitalization)
  Sender: FDA-Public Use
  Company Number: 2008BI019247

PATIENT
  Age: 42 Year
  Sex: Female

DRUGS (2)
  1. TYSABRI [Suspect]
     Indication: MULTIPLE SCLEROSIS
     Dosage: 300 MG;QM;IV
     Route: 042
     Dates: start: 20080502
  2. LOVENOX [Concomitant]

REACTIONS (10)
  - BEDRIDDEN [None]
  - BLOOD POTASSIUM DECREASED [None]
  - HEMIPARESIS [None]
  - MOBILITY DECREASED [None]
  - MOVEMENT DISORDER [None]
  - OEDEMA [None]
  - PAIN [None]
  - RED BLOOD CELLS URINE POSITIVE [None]
  - URINE LEUKOCYTE ESTERASE POSITIVE [None]
  - WHITE BLOOD CELLS URINE POSITIVE [None]
